FAERS Safety Report 24120821 (Version 1)
Quarter: 2024Q3

REPORT INFORMATION
  Report Type: Spontaneous
  Country: US (occurrence: None)
  Receive Date: 20240718
  Receipt Date: 20240718
  Transmission Date: 20241016
  Serious: Yes (Hospitalization)
  Sender: Public
  Company Number: None

PATIENT
  Age: 66 Year
  Sex: Female
  Weight: 55.35 kg

DRUGS (1)
  1. LENVATINIB [Suspect]
     Active Substance: LENVATINIB
     Indication: Papillary thyroid cancer
     Dosage: FREQUENCY : DAILY;?
     Route: 048

REACTIONS (11)
  - Thrombocytopenia [None]
  - Rash [None]
  - Stomatitis [None]
  - Renal impairment [None]
  - Asthenia [None]
  - Fatigue [None]
  - Cough [None]
  - Acute respiratory failure [None]
  - Deep vein thrombosis [None]
  - Troponin increased [None]
  - Cardiac failure congestive [None]

NARRATIVE: CASE EVENT DATE: 20240707
